FAERS Safety Report 8587062-5 (Version None)
Quarter: 2012Q3

REPORT INFORMATION
  Report Type: 
  Country: None (occurrence: None)
  Receive Date: 20120810
  Receipt Date: 20120803
  Transmission Date: 20120928
  Serious: Yes (Death, Other)
  Sender: FDA-Public Use
  Company Number: NL-AMGEN-NLDSP2012048579

PATIENT
  Age: 27 Year
  Sex: Male

DRUGS (2)
  1. ANTINEOPLASTIC AGENTS [Concomitant]
  2. NEUPOGEN [Suspect]
     Indication: INFANTILE GENETIC AGRANULOCYTOSIS
     Dosage: 10 MUG/KG, UNK
     Dates: start: 19900101

REACTIONS (5)
  - MYELODYSPLASTIC SYNDROME [None]
  - GENE MUTATION [None]
  - TRISOMY 21 [None]
  - DEATH [None]
  - ACUTE MYELOID LEUKAEMIA [None]
